FAERS Safety Report 10020924 (Version 1)
Quarter: 2014Q1

REPORT INFORMATION
  Report Type: Spontaneous
  Country: NL (occurrence: None)
  Receive Date: 20140313
  Receipt Date: 20140313
  Transmission Date: 20141002
  Serious: Yes (Hospitalization)
  Sender: FDA-Public Use
  Company Number: 2014P1002172

PATIENT
  Age: 75 Year
  Sex: Male

DRUGS (12)
  1. HYDROCHLOROQUINE [Suspect]
     Indication: Q FEVER
     Route: 048
     Dates: start: 2012
  2. PANTOPRAZOLE [Concomitant]
  3. CHOLECALCIFEROL [Concomitant]
  4. ATORVASTATIN [Concomitant]
  5. DOXYCYCLINE [Concomitant]
  6. INDACATEROL MALEATE [Concomitant]
  7. GLYCOPYRRONIUM [Concomitant]
  8. ACENOCOUMAROL [Concomitant]
  9. SALBUTAMOL [Concomitant]
  10. PARACETAMOL [Concomitant]
  11. CLOTRIMAZOLE [Concomitant]
  12. HYDROCORTISONE/MICONAZOLE [Concomitant]

REACTIONS (2)
  - Off label use [None]
  - Blood glucose decreased [None]
